FAERS Safety Report 5020686-0 (Version None)
Quarter: 2006Q2

REPORT INFORMATION
  Report Type: 
  Country: None (occurrence: None)
  Receive Date: 20060602
  Receipt Date: 20060511
  Transmission Date: 20061013
  Serious: Yes (Hospitalization, Other)
  Sender: FDA-Public Use
  Company Number: US200605004493

PATIENT
  Age: 54 Year
  Sex: Male

DRUGS (8)
  1. GEMZAR [Suspect]
     Indication: NON-HODGKIN'S LYMPHOMA
     Dosage: 500 MG/M2, OTHER, INTRAVENOUS
     Route: 042
     Dates: start: 20060427
  2. VALTREX [Concomitant]
  3. BACTRIM [Concomitant]
  4. SEROQUEL [Concomitant]
  5. DIFLUCAN [Concomitant]
  6. ALLOPURINOL [Concomitant]
  7. SOLU-MEDROL [Concomitant]
  8. RITUXAN [Concomitant]

REACTIONS (29)
  - ABDOMINAL DISTENSION [None]
  - ABDOMINAL PAIN [None]
  - ABDOMINAL TENDERNESS [None]
  - ALANINE AMINOTRANSFERASE INCREASED [None]
  - ANAEMIA [None]
  - ASCITES [None]
  - BACK PAIN [None]
  - BLOOD ALBUMIN DECREASED [None]
  - BLOOD ALKALINE PHOSPHATASE INCREASED [None]
  - BLOOD CALCIUM DECREASED [None]
  - BLOOD GLUCOSE INCREASED [None]
  - BLOOD POTASSIUM DECREASED [None]
  - BLOOD SODIUM DECREASED [None]
  - CHILLS [None]
  - DIZZINESS POSTURAL [None]
  - FATIGUE [None]
  - HAEMATURIA [None]
  - HEART RATE INCREASED [None]
  - HYDRONEPHROSIS [None]
  - NEUTROPENIA [None]
  - NIGHT SWEATS [None]
  - OEDEMA [None]
  - PALLOR [None]
  - PLEURAL EFFUSION [None]
  - POST PROCEDURAL COMPLICATION [None]
  - PROTEIN TOTAL INCREASED [None]
  - RENAL FAILURE ACUTE [None]
  - RESPIRATORY RATE INCREASED [None]
  - THROMBOCYTOPENIA [None]
